FAERS Safety Report 9671783 (Version 3)
Quarter: 2013Q4

REPORT INFORMATION
  Report Type: Spontaneous
  Country: US (occurrence: US)
  Receive Date: 20131106
  Receipt Date: 20131203
  Transmission Date: 20140711
  Serious: Yes (Hospitalization)
  Sender: FDA-Public Use
  Company Number: US-PFIZER INC-2013313133

PATIENT
  Age: 63 Year
  Sex: Female

DRUGS (14)
  1. SUTENT [Suspect]
     Dosage: 50 MG, DAILY, CYCLIC
     Dates: start: 20130708
  2. XGEVA [Concomitant]
     Dosage: UNK, MONTHLY
  3. ZOFRAN [Concomitant]
     Dosage: UNK
  4. ZESTORETIC [Concomitant]
     Dosage: UNK
  5. LORAZEPAM [Concomitant]
     Dosage: UNK
  6. PERCOCET [Concomitant]
     Dosage: UNK
  7. CELEXA [Concomitant]
     Dosage: UNK
  8. LASIX [Concomitant]
     Dosage: UNK, AS NEEDED (PRN)
  9. TRAZODONE [Concomitant]
     Dosage: UNK
  10. ZOCOR [Concomitant]
     Dosage: UNK
  11. NADOLOL [Concomitant]
     Dosage: UNK
  12. METFORMIN [Concomitant]
     Dosage: UNK
  13. LEVEMIR [Concomitant]
     Dosage: UNK
  14. MAGIC SWIZZLE [Concomitant]
     Dosage: UNK

REACTIONS (8)
  - Dyspnoea [Unknown]
  - Pleural effusion [Unknown]
  - Hypertension [Unknown]
  - Somnolence [Not Recovered/Not Resolved]
  - Blood glucose decreased [Recovered/Resolved]
  - Oedema peripheral [Unknown]
  - Weight increased [Unknown]
  - Abdominal distension [Unknown]
